FAERS Safety Report 11870097 (Version 1)
Quarter: 2015Q4

REPORT INFORMATION
  Report Type: Spontaneous
  Country: DE (occurrence: DE)
  Receive Date: 20151228
  Receipt Date: 20151228
  Transmission Date: 20160305
  Serious: Yes (Other)
  Sender: FDA-Public Use
  Company Number: DE-DRREDDYS-GER/GER/15/0054798

PATIENT
  Age: 1 Day
  Sex: Female
  Weight: 3.16 kg

DRUGS (5)
  1. FOLIO [Concomitant]
     Active Substance: FOLIC ACID
     Indication: PRODUCT USED FOR UNKNOWN INDICATION
     Route: 064
  2. URSODEOXYCHOLIC ACID [Concomitant]
     Active Substance: URSODIOL
     Indication: PRODUCT USED FOR UNKNOWN INDICATION
     Route: 064
     Dates: start: 20150621, end: 20150701
  3. AMITRIPTYLINE [Concomitant]
     Active Substance: AMITRIPTYLINE
     Indication: PRODUCT USED FOR UNKNOWN INDICATION
     Route: 064
  4. VENLAFAXINE [Suspect]
     Active Substance: VENLAFAXINE HYDROCHLORIDE
     Indication: PRODUCT USED FOR UNKNOWN INDICATION
     Route: 064
     Dates: start: 20141021, end: 20150701
  5. SEROQUEL XR [Suspect]
     Active Substance: QUETIAPINE FUMARATE
     Indication: PRODUCT USED FOR UNKNOWN INDICATION
     Route: 064
     Dates: start: 20141021, end: 20150701

REACTIONS (8)
  - Hypotonia neonatal [Recovered/Resolved]
  - Atrial septal defect [Unknown]
  - Agitation neonatal [Recovered/Resolved]
  - Seizure [Recovered/Resolved]
  - Foetal exposure during pregnancy [Unknown]
  - Temperature regulation disorder [Recovered/Resolved]
  - Syndactyly [Not Recovered/Not Resolved]
  - Feeding disorder of infancy or early childhood [Recovered/Resolved]

NARRATIVE: CASE EVENT DATE: 20150701
